FAERS Safety Report 20996677 (Version 1)
Quarter: 2022Q2

REPORT INFORMATION
  Report Type: Spontaneous
  Country: NO (occurrence: NO)
  Receive Date: 20220623
  Receipt Date: 20220623
  Transmission Date: 20220721
  Serious: Yes (Hospitalization, Disabling, Other)
  Sender: FDA-Public Use
  Company Number: None

PATIENT
  Age: 19 Year
  Sex: Male

DRUGS (1)
  1. CONCERTA [Suspect]
     Active Substance: METHYLPHENIDATE HYDROCHLORIDE
     Indication: Attention deficit hyperactivity disorder
     Dosage: 30 MG X 1 AS STARTING DOSE WHEN TREATMENT WAS RESTARTED
     Route: 048
     Dates: start: 20180930, end: 20220527

REACTIONS (1)
  - Cerebral arteritis [Not Recovered/Not Resolved]

NARRATIVE: CASE EVENT DATE: 20181001
